FAERS Safety Report 8835931 (Version 1)
Quarter: 2012Q4

REPORT INFORMATION
  Report Type: 
  Country: US (occurrence: US)
  Receive Date: 20121011
  Receipt Date: 20121011
  Transmission Date: 20130627
  Serious: Yes (Hospitalization, Other)
  Sender: FDA-Public Use
  Company Number: US-NOVOPROD-361456

PATIENT
  Sex: Female

DRUGS (2)
  1. NOVOLIN R [Suspect]
     Indication: DIABETES MELLITUS
     Route: 058
  2. LANTUS [Suspect]
     Indication: DIABETES MELLITUS
     Route: 058

REACTIONS (2)
  - Adverse drug reaction [Recovered/Resolved]
  - Unevaluable event [Recovered/Resolved]
